FAERS Safety Report 11810593 (Version 2)
Quarter: 2016Q2

REPORT INFORMATION
  Report Type: Report from Study
  Country: ES (occurrence: ES)
  Receive Date: 20151208
  Receipt Date: 20160408
  Transmission Date: 20160815
  Serious: Yes (Hospitalization)
  Sender: FDA-Public Use
  Company Number: ES-ALEXION PHARMACEUTICALS INC.-A201504764

PATIENT
  Age: 59 Year
  Sex: Male
  Weight: 66 kg

DRUGS (50)
  1. ECULIZUMAB [Suspect]
     Active Substance: ECULIZUMAB
     Route: 042
     Dates: start: 20151101, end: 20151101
  2. METHYLPREDNISOLONE. [Concomitant]
     Active Substance: METHYLPREDNISOLONE
     Dosage: 10 MG, DAILY
     Route: 048
     Dates: start: 20151124, end: 20151216
  3. FOLIC ACID. [Concomitant]
     Active Substance: FOLIC ACID
     Indication: PROPHYLAXIS
     Dosage: 5 MG, QD
     Route: 048
     Dates: start: 20151101, end: 20151201
  4. CALCIUM CARBONATE. [Concomitant]
     Active Substance: CALCIUM CARBONATE
     Dosage: 2500 MG, QD
     Route: 048
     Dates: start: 20151112, end: 20151116
  5. METHYLPREDNISOLONE. [Concomitant]
     Active Substance: METHYLPREDNISOLONE
     Dosage: 15 MG, DAILY
     Route: 048
     Dates: start: 20151109, end: 20151118
  6. PHYTOMENADIONE [Concomitant]
     Active Substance: PHYTONADIONE
     Indication: HAEMORRHAGE PROPHYLAXIS
     Dosage: 10 MG, BID
     Route: 042
     Dates: start: 20151031, end: 20151031
  7. PARACETAMOL [Concomitant]
     Active Substance: ACETAMINOPHEN
     Indication: ANALGESIC THERAPY
     Dosage: 1000 MG, TID
     Route: 042
     Dates: start: 20151031, end: 20151112
  8. MYCOPHENOLATE SODIUM [Concomitant]
     Active Substance: MYCOPHENOLATE SODIUM
     Indication: IMMUNOSUPPRESSANT DRUG THERAPY
     Dosage: 720 MG, BID
     Route: 048
     Dates: start: 20151031, end: 20151108
  9. MYCOPHENOLATE SODIUM [Concomitant]
     Active Substance: MYCOPHENOLATE SODIUM
     Dosage: 540 MG, BID
     Route: 048
     Dates: start: 20151109, end: 20151122
  10. METAMIZOL                          /06276702/ [Concomitant]
     Active Substance: METAMIZOLE
     Indication: ANALGESIC THERAPY
     Dosage: 2000 MG, TID
     Route: 042
     Dates: start: 20151101, end: 20151109
  11. CALCIUM GLUCONATE. [Concomitant]
     Active Substance: CALCIUM GLUCONATE
     Indication: HYPOCALCAEMIA
     Dosage: 9.5 G, TID
     Route: 042
     Dates: start: 20151101, end: 20151106
  12. OMEPRAZOLE. [Concomitant]
     Active Substance: OMEPRAZOLE
     Indication: PROPHYLAXIS
     Dosage: 20 MG, QD
     Route: 048
     Dates: start: 20151104
  13. FERROUS SULFATE. [Concomitant]
     Active Substance: FERROUS SULFATE
     Indication: ANAEMIA
     Dosage: 80 MG, QD
     Route: 048
     Dates: start: 20151113
  14. TACROLIMUS. [Concomitant]
     Active Substance: TACROLIMUS
     Dosage: 6 MG, DAILY
     Route: 048
     Dates: start: 20151031, end: 20151104
  15. TACROLIMUS. [Concomitant]
     Active Substance: TACROLIMUS
     Dosage: 11 MG, DAILY
     Route: 048
     Dates: start: 20151117, end: 20151130
  16. CALCIUM CARBONATE. [Concomitant]
     Active Substance: CALCIUM CARBONATE
     Dosage: 2500 MG, BID
     Route: 048
     Dates: start: 20151110, end: 20151111
  17. TACROLIMUS. [Concomitant]
     Active Substance: TACROLIMUS
     Indication: IMMUNOSUPPRESSANT DRUG THERAPY
     Dosage: 7 MG, DAILY
     Route: 048
     Dates: start: 20150705, end: 20151106
  18. TACROLIMUS. [Concomitant]
     Active Substance: TACROLIMUS
     Dosage: 9 MG, DAILY
     Route: 048
     Dates: start: 20151007, end: 20151113
  19. TACROLIMUS. [Concomitant]
     Active Substance: TACROLIMUS
     Dosage: 10 MG, DAILY
     Route: 048
     Dates: start: 20151114, end: 20151116
  20. METHYLPREDNISOLONE. [Concomitant]
     Active Substance: METHYLPREDNISOLONE
     Dosage: 375 MG, SINGLE
     Route: 042
     Dates: start: 20151031, end: 20151031
  21. METHYLPREDNISOLONE. [Concomitant]
     Active Substance: METHYLPREDNISOLONE
     Dosage: 20 MG, DAILY
     Route: 048
     Dates: start: 20151106, end: 20151108
  22. INSULIN HUMAN BIOSYNTHETIC [Concomitant]
     Indication: HYPERGLYCAEMIA
     Dosage: IU, AS NEEDED
     Route: 058
     Dates: start: 20151101, end: 20151125
  23. DIAZEPAM. [Concomitant]
     Active Substance: DIAZEPAM
     Indication: ANXIETY
     Dosage: 5 MG, SINGLE
     Route: 048
     Dates: start: 20151103, end: 20151103
  24. DIAZEPAM. [Concomitant]
     Active Substance: DIAZEPAM
     Dosage: 5 MG, QD
     Route: 048
     Dates: start: 20151124, end: 20151125
  25. ECULIZUMAB [Suspect]
     Active Substance: ECULIZUMAB
     Indication: COMPLICATIONS OF TRANSPLANTED KIDNEY
     Route: 042
     Dates: start: 20151031, end: 20151031
  26. METHYLPREDNISOLONE. [Concomitant]
     Active Substance: METHYLPREDNISOLONE
     Dosage: 12.5 MG, DAILY
     Route: 048
     Dates: start: 20151119, end: 20151123
  27. PARACETAMOL [Concomitant]
     Active Substance: ACETAMINOPHEN
     Dosage: 1000 MG, PRN
     Route: 048
     Dates: start: 20151113
  28. DEXCHLORPHENIRAMINE MALEATE. [Concomitant]
     Active Substance: DEXCHLORPHENIRAMINE MALEATE
     Indication: ANTIALLERGIC THERAPY
     Dosage: 5 MG, DAILY
     Route: 042
     Dates: start: 20151031, end: 20151105
  29. GANCICLOVIR. [Concomitant]
     Active Substance: GANCICLOVIR
     Dosage: 80 MG, QD
     Route: 042
     Dates: start: 20151103, end: 20151105
  30. ACENOCUMAROL [Concomitant]
     Active Substance: ACENOCOUMAROL
     Indication: THROMBOSIS PROPHYLAXIS
     Dosage: AS NEEDED MG, QD
     Route: 048
     Dates: start: 20151104
  31. AMLODIPINE [Concomitant]
     Active Substance: AMLODIPINE BESYLATE
     Indication: HYPERTENSION
     Dosage: 5 MG, QD
     Route: 048
     Dates: start: 20151118
  32. METHYLPREDNISOLONE. [Concomitant]
     Active Substance: METHYLPREDNISOLONE
     Dosage: 20 MG, DAILY
     Route: 042
     Dates: start: 20151102, end: 20151105
  33. SCOPOLAMINE BUTYLBROMIDE [Concomitant]
     Active Substance: SCOPOLAMINE
     Indication: ANALGESIC THERAPY
     Dosage: 10 MG, TID
     Route: 042
     Dates: start: 20151101, end: 20151112
  34. MONOPOTASSIUM PHOSPHATE [Concomitant]
     Dosage: 11.02 MMOL, QD
     Route: 042
     Dates: start: 20151111, end: 20151112
  35. TACROLIMUS. [Concomitant]
     Active Substance: TACROLIMUS
     Dosage: 10 MG, DAILY
     Route: 048
     Dates: start: 20151201, end: 20151216
  36. BERIPLEX HS [Concomitant]
     Active Substance: COAGULATION FACTOR IX HUMAN\COAGULATION FACTOR VII HUMAN\COAGULATION FACTOR X HUMAN\PROTEIN C\PROTEIN S HUMAN\PROTHROMBIN
     Indication: HAEMORRHAGE PROPHYLAXIS
     Dosage: 1750 IU, SINGLE
     Route: 042
     Dates: start: 20151031, end: 20151031
  37. CIPROFLOXACIN. [Concomitant]
     Active Substance: CIPROFLOXACIN
     Indication: INFECTION PROPHYLAXIS
     Dosage: 200 MG, BID
     Route: 042
     Dates: start: 20151031, end: 20151114
  38. GANCICLOVIR. [Concomitant]
     Active Substance: GANCICLOVIR
     Dosage: 40 MG, SINGLE
     Route: 042
     Dates: start: 20151102, end: 20151102
  39. SULFAMETHOXAZOLE AND TRIMETHOPRIM [Concomitant]
     Active Substance: SULFAMETHOXAZOLE\TRIMETHOPRIM
     Indication: PROPHYLAXIS
     Dosage: 80/400 MG, QD
     Route: 048
     Dates: start: 20151101, end: 20151201
  40. METOCLOPRAMIDE HYDROCHLORIDE. [Concomitant]
     Active Substance: METOCLOPRAMIDE HYDROCHLORIDE
     Indication: ANTIEMETIC SUPPORTIVE CARE
     Dosage: 10 MG, TID
     Route: 042
     Dates: start: 20151101, end: 20151109
  41. NYSTATINE [Concomitant]
     Indication: PROPHYLAXIS
     Dosage: 500000 IU, TID
     Route: 048
     Dates: start: 20151101, end: 20151207
  42. CARVEDILOL. [Concomitant]
     Active Substance: CARVEDILOL
     Indication: CARDIAC FAILURE
     Dosage: 6.25 MG, BID
     Route: 048
     Dates: start: 20151103
  43. ENOXAPARIN SODIUM. [Concomitant]
     Active Substance: ENOXAPARIN SODIUM
     Indication: THROMBOSIS PROPHYLAXIS
     Dosage: 40 MG, QD
     Route: 058
     Dates: start: 20151103, end: 20151105
  44. CALCIUM CARBONATE. [Concomitant]
     Active Substance: CALCIUM CARBONATE
     Indication: HYPOCALCAEMIA
     Dosage: 2500 MG, TID
     Route: 048
     Dates: start: 20151107, end: 20151109
  45. METHYLPREDNISOLONE. [Concomitant]
     Active Substance: METHYLPREDNISOLONE
     Indication: IMMUNOSUPPRESSANT DRUG THERAPY
     Dosage: 125 MG, DAILY
     Route: 042
     Dates: start: 20151031, end: 20151101
  46. MYCOPHENOLATE SODIUM [Concomitant]
     Active Substance: MYCOPHENOLATE SODIUM
     Dosage: 360 MG, BID
     Route: 048
     Dates: start: 20151123
  47. THYMOGLOBULIN [Concomitant]
     Active Substance: LAPINE T-LYMPHOCYTE IMMUNE GLOBULIN
     Indication: IMMUNOSUPPRESSANT DRUG THERAPY
     Dosage: 75 MG, QD
     Route: 042
     Dates: start: 20151031, end: 20151105
  48. GANCICLOVIR. [Concomitant]
     Active Substance: GANCICLOVIR
     Indication: ANTIVIRAL PROPHYLAXIS
     Dosage: 30 ?G, SINGLE
     Route: 042
     Dates: start: 20151101, end: 20151101
  49. MONOPOTASSIUM PHOSPHATE [Concomitant]
     Indication: HYPOPHOSPHATAEMIA
     Dosage: 11.02 MMOL, SINGLE
     Route: 042
     Dates: start: 20151104, end: 20151104
  50. VALGANCICLOVIR. [Concomitant]
     Active Substance: VALGANCICLOVIR
     Indication: ANTIVIRAL PROPHYLAXIS
     Dosage: 900 MG, QD
     Route: 048
     Dates: start: 20151106, end: 20151201

REACTIONS (1)
  - Lymphorrhoea [Recovered/Resolved]

NARRATIVE: CASE EVENT DATE: 20151115
